FAERS Safety Report 6972475-5 (Version None)
Quarter: 2010Q3

REPORT INFORMATION
  Report Type: 
  Country: None (occurrence: None)
  Receive Date: 20100909
  Receipt Date: 20100901
  Transmission Date: 20110219
  Serious: Yes (Other)
  Sender: FDA-Public Use
  Company Number: US-RB-013823-10

PATIENT
  Age: 38 Year
  Sex: Female

DRUGS (1)
  1. SUBUTEX [Suspect]
     Indication: PRODUCT USED FOR UNKNOWN INDICATION
     Dosage: UNKNOWN DOSING DETAILS
     Route: 065

REACTIONS (6)
  - ABDOMINAL PAIN UPPER [None]
  - CONVULSION [None]
  - FEELING OF BODY TEMPERATURE CHANGE [None]
  - MUSCLE SPASMS [None]
  - PYREXIA [None]
  - VOMITING [None]
